FAERS Safety Report 20324210 (Version 1)
Quarter: 2022Q1

REPORT INFORMATION
  Report Type: Report from Study
  Country: US (occurrence: None)
  Receive Date: 20220111
  Receipt Date: 20220111
  Transmission Date: 20220423
  Serious: Yes (Other)
  Sender: FDA-Public Use
  Company Number: US-Eisai Medical Research-EC-2022-106348

PATIENT
  Age: 58 Year
  Sex: Female
  Weight: 98.8 kg

DRUGS (6)
  1. LENVIMA [Suspect]
     Active Substance: LENVATINIB
     Indication: Endometrial cancer
     Route: 048
     Dates: start: 2021, end: 2021
  2. LENVIMA [Suspect]
     Active Substance: LENVATINIB
     Route: 048
     Dates: start: 2021, end: 2021
  3. LENVIMA [Suspect]
     Active Substance: LENVATINIB
     Route: 048
     Dates: start: 2021, end: 20211127
  4. LENVIMA [Suspect]
     Active Substance: LENVATINIB
     Route: 048
     Dates: start: 2021
  5. KEYTRUDA [Concomitant]
     Active Substance: PEMBROLIZUMAB
     Dosage: 100MG/4ML VIAL
     Route: 042
     Dates: end: 20211124
  6. LEVOTHYROXINE [Concomitant]
     Active Substance: LEVOTHYROXINE
     Route: 048

REACTIONS (1)
  - Cardiac failure congestive [Unknown]

NARRATIVE: CASE EVENT DATE: 20210101
